FAERS Safety Report 17430454 (Version 1)
Quarter: 2020Q1

REPORT INFORMATION
  Report Type: Spontaneous
  Country: US (occurrence: US)
  Receive Date: 20200216
  Receipt Date: 20200216
  Transmission Date: 20200409
  Serious: No
  Sender: FDA-Public Use
  Company Number: None

PATIENT
  Age: 13 Year
  Sex: Female
  Weight: 67.5 kg

DRUGS (2)
  1. DELSYM [Concomitant]
     Active Substance: DEXTROMETHORPHAN
  2. CEFDINIR 300 MG CAPSULE [Suspect]
     Active Substance: CEFDINIR
     Indication: RESPIRATORY DISORDER
     Dosage: ?          QUANTITY:20 CAPSULE(S);?
     Route: 048
     Dates: start: 20200213, end: 20200216

REACTIONS (5)
  - Anxiety [None]
  - Nervousness [None]
  - Decreased appetite [None]
  - Depressed mood [None]
  - Tremor [None]

NARRATIVE: CASE EVENT DATE: 20200213
